FAERS Safety Report 25106134 (Version 2)
Quarter: 2025Q1

REPORT INFORMATION
  Report Type: Report from Study
  Country: US (occurrence: US)
  Receive Date: 20250321
  Receipt Date: 20250326
  Transmission Date: 20250409
  Serious: Yes (Other)
  Sender: NOVARTIS
  Company Number: US-002147023-NVSC2025US047533

PATIENT
  Age: 48 Year
  Sex: Female
  Weight: 104.78 kg

DRUGS (2)
  1. ENTRESTO [Suspect]
     Active Substance: SACUBITRIL\VALSARTAN
     Indication: Cardiac failure congestive
     Dosage: 97-103 MG, BID
     Route: 048
     Dates: start: 201803
  2. ENTRESTO [Suspect]
     Active Substance: SACUBITRIL\VALSARTAN
     Dosage: 97-103 MG, BID
     Route: 048
     Dates: start: 201903, end: 202503

REACTIONS (5)
  - Cardiac flutter [Unknown]
  - Peripheral swelling [Unknown]
  - Dyspnoea [Unknown]
  - Anxiety [Unknown]
  - Product dose omission issue [Unknown]

NARRATIVE: CASE EVENT DATE: 20250309
